FAERS Safety Report 4385318-3 (Version None)
Quarter: 2004Q2

REPORT INFORMATION
  Report Type: 
  Country: None (occurrence: None)
  Receive Date: 20040624
  Receipt Date: 20040624
  Transmission Date: 20050107
  Serious: Yes (Death, Other)
  Sender: FDA-Public Use
  Company Number: None

PATIENT
  Age: 71 Year
  Sex: Male
  Weight: 95.2554 kg

DRUGS (3)
  1. LIPITOR [Suspect]
     Indication: BLOOD CHOLESTEROL INCREASED
     Dosage: 10 MG PO QD
     Route: 048
     Dates: start: 20010101, end: 20011101
  2. SIMVASTATIN [Concomitant]
  3. LOVASTATIN [Concomitant]

REACTIONS (1)
  - MYALGIA [None]
